FAERS Safety Report 9787563 (Version 1)
Quarter: 2013Q4

REPORT INFORMATION
  Report Type: Spontaneous
  Country: CA (occurrence: None)
  Receive Date: 20131224
  Receipt Date: 20131224
  Transmission Date: 20140711
  Serious: Yes (Other)
  Sender: FDA-Public Use
  Company Number: AUR-APL-2013-10575

PATIENT
  Age: 64 Year
  Sex: Male

DRUGS (4)
  1. RAMIPRIL (RAMIPRIL) [Suspect]
     Indication: PRODUCT USED FOR UNKNOWN INDICATION
     Route: 048
  2. METFORMIN HCL [Suspect]
     Indication: PRODUCT USED FOR UNKNOWN INDICATION
     Route: 048
  3. CRESTOR (ROSUVASTATIN CALCIUM) [Suspect]
     Indication: PRODUCT USED FOR UNKNOWN INDICATION
     Route: 048
  4. SENSODYNE-F BRILLANTWHITENING TOOTHPASTE [Suspect]
     Indication: PRODUCT USED FOR UNKNOWN INDICATION
     Route: 004

REACTIONS (9)
  - Discomfort [None]
  - Oropharyngeal discomfort [None]
  - Oropharyngeal pain [None]
  - Speech disorder [None]
  - Throat tightness [None]
  - Oedema mouth [None]
  - Hypersensitivity [None]
  - Pharyngeal oedema [None]
  - Lip swelling [None]
